FAERS Safety Report 9493722 (Version 1)
Quarter: 2013Q3

REPORT INFORMATION
  Report Type: Spontaneous
  Country: US (occurrence: US)
  Receive Date: 20130902
  Receipt Date: 20130902
  Transmission Date: 20140515
  Serious: No
  Sender: FDA-Public Use
  Company Number: US-BAYER-2013-104705

PATIENT
  Age: 24 Year
  Sex: Female
  Weight: 54.42 kg

DRUGS (1)
  1. ALEVE TABLET [Suspect]
     Indication: ANALGESIC THERAPY
     Dosage: 3 DF, TID
     Route: 048
     Dates: start: 20130824, end: 20130825

REACTIONS (4)
  - Abdominal discomfort [None]
  - Vomiting [Not Recovered/Not Resolved]
  - Extra dose administered [None]
  - Extra dose administered [None]
